FAERS Safety Report 20428798 (Version 2)
Quarter: 2022Q1

REPORT INFORMATION
  Report Type: Report from Study
  Country: US (occurrence: US)
  Receive Date: 20220204
  Receipt Date: 20220301
  Transmission Date: 20220424
  Serious: Yes (Hospitalization, Other)
  Sender: FDA-Public Use
  Company Number: US-INTERCEPT-CT2021001887

PATIENT
  Age: 46 Year
  Sex: Male
  Weight: 86 kg

DRUGS (3)
  1. OBETICHOLIC ACID [Suspect]
     Active Substance: OBETICHOLIC ACID
     Indication: Non-alcoholic steatohepatitis
     Dosage: 25 MILIGRAM, QD
     Route: 048
     Dates: start: 20171221
  2. LEVETIRACETAM [Concomitant]
     Active Substance: LEVETIRACETAM
     Indication: Epilepsy
     Dosage: 750 MILLIGRAM, BID
     Route: 048
     Dates: start: 2006
  3. ATORVASTATIN [Concomitant]
     Active Substance: ATORVASTATIN
     Indication: Low density lipoprotein increased
     Dosage: 10 MILLIGRAM, QD
     Route: 048
     Dates: start: 20180315

REACTIONS (2)
  - Biliary obstruction [Recovered/Resolved]
  - Hyperbilirubinaemia [Recovered/Resolved]

NARRATIVE: CASE EVENT DATE: 20210603
